FAERS Safety Report 7544969-5 (Version None)
Quarter: 2011Q2

REPORT INFORMATION
  Report Type: 
  Country: None (occurrence: None)
  Receive Date: 20110614
  Receipt Date: 20110601
  Transmission Date: 20111010
  Serious: Yes (Disabling)
  Sender: FDA-Public Use
  Company Number: PT-BAYER-2011-006353

PATIENT
  Age: 75 Year
  Sex: Male
  Weight: 53 kg

DRUGS (8)
  1. PROPRANOLOL [Concomitant]
     Dosage: DAILY DOSE 10 MG
     Dates: start: 20030404
  2. OMEPRAZOLE [Concomitant]
     Dosage: DAILY DOSE 20 MG
     Dates: start: 20030404
  3. SPIRONOLACTONE [Concomitant]
     Dosage: DAILY DOSE 100 MG
     Dates: start: 20030404
  4. SORAFENIB [Suspect]
     Dosage: UNK
     Route: 048
     Dates: start: 20100427, end: 20100921
  5. LOPERAMIDE [Concomitant]
     Dosage: DAILY DOSE 2 MG
     Dates: start: 20100212
  6. SORAFENIB [Suspect]
     Indication: HEPATIC NEOPLASM MALIGNANT
     Dosage: 400 MG, BID
     Route: 048
     Dates: start: 20091223, end: 20100213
  7. SORAFENIB [Suspect]
     Dosage: DAILY DOSE 600 MG
     Route: 048
     Dates: start: 20100214, end: 20100426
  8. FUROSEMIDE [Concomitant]
     Dosage: DAILY DOSE 40 MG
     Dates: start: 20030404

REACTIONS (2)
  - FATIGUE [None]
  - HEPATIC ENCEPHALOPATHY [None]
